FAERS Safety Report 9527907 (Version 1)
Quarter: 2013Q3

REPORT INFORMATION
  Report Type: Spontaneous
  Country: US (occurrence: US)
  Receive Date: 20130917
  Receipt Date: 20130917
  Transmission Date: 20140515
  Serious: No
  Sender: FDA-Public Use
  Company Number: US-PFIZER INC-2013262553

PATIENT
  Age: 70 Year
  Sex: Female
  Weight: 53.06 kg

DRUGS (5)
  1. ADVIL [Suspect]
     Indication: ARTHRITIS
     Dosage: UNK
     Route: 048
     Dates: start: 2013, end: 2013
  2. ADVIL [Suspect]
     Dosage: SIX CAPSULES IN A DAY
     Route: 048
     Dates: start: 20130907
  3. LISINOPRIL [Concomitant]
     Indication: HYPERTENSION
     Dosage: 5 MG, DAILY
  4. CARDIZEM [Concomitant]
     Indication: HYPERTENSION
     Dosage: 240 MG, DAILY
  5. SYNTHROID [Concomitant]
     Indication: THYROID DISORDER
     Dosage: 1 UG, DAILY

REACTIONS (1)
  - Diarrhoea [Unknown]
